FAERS Safety Report 8916594 (Version 2)
Quarter: 2013Q1

REPORT INFORMATION
  Report Type: Spontaneous
  Country: US (occurrence: US)
  Receive Date: 20121120
  Receipt Date: 20130227
  Transmission Date: 20140127
  Serious: Yes (Other)
  Sender: FDA-Public Use
  Company Number: US-BAYER-2012-118971

PATIENT
  Age: 37 Year
  Sex: Female
  Weight: 108.84 kg

DRUGS (4)
  1. MIRENA [Suspect]
     Indication: CONTRACEPTION
     Dosage: 20 MCG/24HR, CONT
     Route: 015
     Dates: start: 20120410, end: 20130117
  2. MIRENA [Suspect]
     Indication: MENORRHAGIA
  3. DEPO PROVERA [Concomitant]
     Indication: MENORRHAGIA
  4. BLACK BEAN SUPPLEMENT [Concomitant]
     Indication: WEIGHT DECREASED

REACTIONS (5)
  - Genital haemorrhage [None]
  - Device dislocation [Recovered/Resolved]
  - Menorrhagia [None]
  - Menorrhagia [None]
  - Vaginal discharge [None]
